FAERS Safety Report 5078896-2 (Version None)
Quarter: 2006Q3

REPORT INFORMATION
  Report Type: 
  Country: None (occurrence: None)
  Receive Date: 20060814
  Receipt Date: 20060622
  Transmission Date: 20061208
  Serious: Yes (Life-Threatening, Hospitalization, Disabling)
  Sender: FDA-Public Use
  Company Number: ITWYE771123JUN06

PATIENT
  Sex: Male

DRUGS (1)
  1. ENBREL [Suspect]
     Indication: PSORIASIS
     Dosage: 3 VIALS WITHDRAWN 15 DAYS BEFORE SAE OCCURRENCE

REACTIONS (2)
  - CYSTITIS [None]
  - GUILLAIN-BARRE SYNDROME [None]
